FAERS Safety Report 4742587-5 (Version None)
Quarter: 2005Q3

REPORT INFORMATION
  Report Type: 
  Country: None (occurrence: None)
  Receive Date: 20050808
  Receipt Date: 20050721
  Transmission Date: 20060218
  Serious: Yes (Hospitalization)
  Sender: FDA-Public Use
  Company Number: US_0411107655

PATIENT
  Age: 45 Year
  Sex: Female
  Weight: 102 kg

DRUGS (26)
  1. ZYPREXA [Suspect]
     Dosage: 25 MG
     Dates: start: 19990626
  2. PROZAC [Suspect]
  3. SYMBYAX [Suspect]
     Dates: end: 20040709
  4. ZYPREXA [Suspect]
     Dosage: 25 MG
     Dates: start: 20040929
  5. FLUOXETINE HCL [Concomitant]
  6. SEROQUEL [Concomitant]
  7. WELLBUTRIN [Concomitant]
  8. REMERON (MIRTAZAPINE ORIFARM) [Concomitant]
  9. LORAZEPAM [Concomitant]
  10. HALDOL (HALOPERIDOL DECANOATE) [Concomitant]
  11. MODAFINIL [Concomitant]
  12. NAPROXEN SODIUM [Concomitant]
  13. CLONAZEPAM [Concomitant]
  14. ATORVASTATIN [Concomitant]
  15. CELECOXIB [Concomitant]
  16. NITROBID (NITROFURANTOIN) [Concomitant]
  17. HYDROCHLOROTHIAZIDE [Concomitant]
  18. ALPRAZOLAM [Concomitant]
  19. ZANAFLEX [Concomitant]
  20. RANITIDINE HCL [Concomitant]
  21. TOPAMAX [Concomitant]
  22. HYDROXYZINE [Concomitant]
  23. METFORMIN [Concomitant]
  24. IMIPRAMINE [Concomitant]
  25. CENESTIN [Concomitant]
  26. QUETIAPINE FUMARATE [Concomitant]

REACTIONS (9)
  - BLOOD CHOLESTEROL ABNORMAL [None]
  - BLOOD CHOLESTEROL INCREASED [None]
  - BLOOD PRESSURE DIASTOLIC DECREASED [None]
  - CARDIAC DISORDER [None]
  - HYPERTENSION [None]
  - OBESITY [None]
  - PRESCRIBED OVERDOSE [None]
  - PROTEIN URINE PRESENT [None]
  - URINE ANALYSIS ABNORMAL [None]
